FAERS Safety Report 24109927 (Version 1)
Quarter: 2024Q3

REPORT INFORMATION
  Report Type: Spontaneous
  Country: US (occurrence: US)
  Receive Date: 20240718
  Receipt Date: 20240718
  Transmission Date: 20241017
  Serious: No
  Sender: AMGEN
  Company Number: US-AMGEN-USASP2024138791

PATIENT
  Age: 12 Year
  Sex: Male

DRUGS (4)
  1. BEVACIZUMAB [Suspect]
     Active Substance: BEVACIZUMAB
     Indication: Atypical teratoid/rhabdoid tumour of CNS
     Dosage: UNK
     Route: 065
  2. NIVOLUMAB [Concomitant]
     Active Substance: NIVOLUMAB
     Indication: Atypical teratoid/rhabdoid tumour of CNS
     Dosage: UNK
     Route: 065
  3. AXITINIB [Concomitant]
     Active Substance: AXITINIB
     Indication: Atypical teratoid/rhabdoid tumour of CNS
     Dosage: 0.8 MILLIGRAM/SQ. METER/ DOSE, BID
     Route: 048
  4. ETOPOSIDE [Concomitant]
     Active Substance: ETOPOSIDE
     Indication: Atypical teratoid/rhabdoid tumour of CNS
     Dosage: 45 MILLIGRAM/SQ. METER/ DOSE, QD
     Route: 048

REACTIONS (5)
  - Gingival pain [Unknown]
  - Alopecia [Unknown]
  - Fatigue [Unknown]
  - Diarrhoea [Unknown]
  - Off label use [Unknown]
